FAERS Safety Report 5056301-X (Version None)
Quarter: 2006Q2

REPORT INFORMATION
  Report Type: 
  Country: None (occurrence: None)
  Receive Date: 20060616
  Receipt Date: 20060113
  Transmission Date: 20061013
  Serious: Yes (Hospitalization)
  Sender: FDA-Public Use
  Company Number: PHEH2006US00925

PATIENT
  Sex: Female

DRUGS (5)
  1. EXELON [Suspect]
     Indication: DEMENTIA ALZHEIMER'S TYPE
     Dosage: SEE IMAGE
     Route: 048
     Dates: end: 20051101
  2. EXELON [Suspect]
     Indication: DEMENTIA ALZHEIMER'S TYPE
     Dosage: SEE IMAGE
     Route: 048
     Dates: start: 20050701
  3. VERAPAMIL [Concomitant]
  4. CLONIDINE [Concomitant]
  5. HALOPERIDOL [Concomitant]

REACTIONS (1)
  - CONVULSION [None]
